FAERS Safety Report 10270874 (Version 1)
Quarter: 2014Q2

REPORT INFORMATION
  Report Type: Spontaneous
  Country: US (occurrence: None)
  Receive Date: 20140627
  Receipt Date: 20140627
  Transmission Date: 20141212
  Serious: Yes (Hospitalization)
  Sender: FDA-Public Use
  Company Number: UNT-2014-002573

PATIENT
  Age: 70 Year
  Sex: Female
  Weight: 72.6 kg

DRUGS (1)
  1. REMODULIN [Suspect]
     Indication: COR PULMONALE CHRONIC
     Route: 041
     Dates: start: 20120504

REACTIONS (3)
  - Confusional state [None]
  - Drug dose omission [None]
  - Mental status changes [None]
